FAERS Safety Report 8790947 (Version 1)
Quarter: 2012Q4

REPORT INFORMATION
  Report Type: Spontaneous
  Country: US (occurrence: None)
  Receive Date: 20120913
  Receipt Date: 20120913
  Transmission Date: 20130627
  Serious: Yes (Life-Threatening, Hospitalization, Disabling)
  Sender: FDA-Public Use
  Company Number: None

PATIENT
  Age: 65 Year
  Sex: Male
  Weight: 104 kg

DRUGS (4)
  1. DILTIAZEM [Suspect]
     Indication: ATRIAL FIBRILLATION
     Route: 041
     Dates: start: 20120906, end: 20120906
  2. SIMVASTATIN [Concomitant]
  3. BISOPROLOL [Concomitant]
  4. WARFARIN [Concomitant]

REACTIONS (3)
  - Headache [None]
  - Atrial flutter [None]
  - Atrioventricular block [None]
